FAERS Safety Report 7362485-0 (Version None)
Quarter: 2011Q1

REPORT INFORMATION
  Report Type: 
  Country: None (occurrence: None)
  Receive Date: 20110318
  Receipt Date: 20110311
  Transmission Date: 20110831
  Serious: Yes (Other)
  Sender: FDA-Public Use
  Company Number: US-RB-021696-11

PATIENT
  Age: 22 Year
  Sex: Male

DRUGS (2)
  1. SUBOXONE [Suspect]
     Indication: PRODUCT USED FOR UNKNOWN INDICATION
     Dosage: SUBLINGUAL FILM- DOSING INFORMATION UNKNOWN
     Route: 065
  2. OXYCODONE HCL [Suspect]
     Indication: PRODUCT USED FOR UNKNOWN INDICATION
     Dosage: DOSING INFORMATION UNKNOWN
     Route: 065

REACTIONS (12)
  - DECREASED APPETITE [None]
  - SUICIDAL IDEATION [None]
  - PILOERECTION [None]
  - DRUG DEPENDENCE [None]
  - FEELING ABNORMAL [None]
  - INSOMNIA [None]
  - LACRIMATION INCREASED [None]
  - GLOSSODYNIA [None]
  - VOMITING [None]
  - INTENTIONAL DRUG MISUSE [None]
  - COLD SWEAT [None]
  - SUBSTANCE ABUSE [None]
